FAERS Safety Report 6314987-3 (Version None)
Quarter: 2009Q3

REPORT INFORMATION
  Report Type: 
  Country: None (occurrence: None)
  Receive Date: 20090819
  Receipt Date: 20090813
  Transmission Date: 20100115
  Serious: Yes (Hospitalization, Congenital Anomaly)
  Sender: FDA-Public Use
  Company Number: B0588532A

PATIENT

DRUGS (3)
  1. DEROXAT [Suspect]
     Dosage: 20MG PER DAY
     Dates: end: 20081118
  2. NORDAZ [Suspect]
     Dates: end: 20081118
  3. LAROXYL [Suspect]
     Dates: start: 20081118

REACTIONS (2)
  - CLEFT LIP AND PALATE [None]
  - DRUG EXPOSURE DURING PREGNANCY [None]
